FAERS Safety Report 5389708-1 (Version None)
Quarter: 2007Q3

REPORT INFORMATION
  Report Type: 
  Country: None (occurrence: None)
  Receive Date: 20070717
  Receipt Date: 20070704
  Transmission Date: 20080115
  Serious: Yes (Other)
  Sender: FDA-Public Use
  Company Number: PL-AMGEN-US233718

PATIENT
  Sex: Female

DRUGS (1)
  1. ENBREL [Suspect]
     Indication: JUVENILE ARTHRITIS
     Dosage: UNKNOWN
     Route: 058

REACTIONS (3)
  - LEUKOCYTOCLASTIC VASCULITIS [None]
  - PRURITUS [None]
  - SOFT TISSUE HAEMORRHAGE [None]
